FAERS Safety Report 12214983 (Version 1)
Quarter: 2016Q1

REPORT INFORMATION
  Report Type: Report from Study
  Country: US (occurrence: US)
  Receive Date: 20160328
  Receipt Date: 20160328
  Transmission Date: 20160526
  Serious: Yes (Death)
  Sender: FDA-Public Use
  Company Number: US-BAYER-2016-055617

PATIENT
  Age: 70 Year

DRUGS (2)
  1. PLAVIX [Interacting]
     Active Substance: CLOPIDOGREL BISULFATE
     Indication: STENT PLACEMENT
     Dosage: 600 MG, UNK
  2. ASPIRIN. [Suspect]
     Active Substance: ASPIRIN
     Indication: STENT PLACEMENT
     Dosage: 325 MG, UNK

REACTIONS (3)
  - Procedural haemorrhage [Fatal]
  - Cerebrovascular accident [Fatal]
  - Labelled drug-drug interaction medication error [None]
